FAERS Safety Report 5310919-5 (Version None)
Quarter: 2007Q2

REPORT INFORMATION
  Report Type: 
  Country: None (occurrence: None)
  Receive Date: 20070430
  Receipt Date: 20070419
  Transmission Date: 20071010
  Serious: Yes (Life-Threatening, Other)
  Sender: FDA-Public Use
  Company Number: CA-JNJFOC-20060703532

PATIENT
  Sex: Male
  Weight: 70.5 kg

DRUGS (30)
  1. REMICADE [Suspect]
     Route: 042
  2. REMICADE [Suspect]
     Route: 042
  3. REMICADE [Suspect]
     Route: 042
  4. REMICADE [Suspect]
     Route: 042
  5. REMICADE [Suspect]
     Route: 042
  6. REMICADE [Suspect]
     Route: 042
  7. REMICADE [Suspect]
     Route: 042
  8. REMICADE [Suspect]
     Route: 042
  9. REMICADE [Suspect]
     Route: 042
  10. REMICADE [Suspect]
     Route: 042
  11. REMICADE [Suspect]
     Route: 042
  12. REMICADE [Suspect]
     Route: 042
  13. REMICADE [Suspect]
     Route: 042
  14. REMICADE [Suspect]
     Route: 042
  15. REMICADE [Suspect]
     Route: 042
  16. REMICADE [Suspect]
     Route: 042
  17. REMICADE [Suspect]
     Route: 042
  18. REMICADE [Suspect]
     Route: 042
  19. REMICADE [Suspect]
     Route: 042
  20. REMICADE [Suspect]
     Route: 042
  21. REMICADE [Suspect]
     Route: 042
  22. REMICADE [Suspect]
     Route: 042
  23. REMICADE [Suspect]
     Route: 042
  24. REMICADE [Suspect]
     Indication: RHEUMATOID ARTHRITIS
     Route: 042
  25. NICODERM [Concomitant]
     Route: 062
  26. NICODERM [Concomitant]
     Route: 062
  27. APO-FOLIC [Concomitant]
     Route: 048
  28. METHOTREXATE [Concomitant]
     Route: 048
  29. SERC [Concomitant]
     Indication: DIZZINESS
     Route: 048
  30. SERC [Concomitant]
     Indication: VERTIGO
     Dosage: 2-3 TIMES/DAY
     Route: 048

REACTIONS (1)
  - HODGKIN'S DISEASE [None]
